FAERS Safety Report 9523482 (Version 2)
Quarter: 2013Q3

REPORT INFORMATION
  Report Type: Report from Study
  Country: JP (occurrence: JP)
  Receive Date: 20130913
  Receipt Date: 20130913
  Transmission Date: 20140515
  Serious: Yes (Other)
  Sender: FDA-Public Use
  Company Number: JP-TAKEDA-TCI2013A03310

PATIENT
  Age: 59 Year
  Sex: Female
  Weight: 41 kg

DRUGS (19)
  1. NESINA [Suspect]
     Route: 048
     Dates: start: 20130214, end: 20130606
  2. AMARYL [Concomitant]
     Indication: TYPE 2 DIABETES MELLITUS
     Route: 048
  3. AMARYL [Concomitant]
     Route: 048
  4. METGLUCO [Concomitant]
     Indication: TYPE 2 DIABETES MELLITUS
     Route: 048
  5. METGLUCO [Concomitant]
     Route: 048
  6. NU-LOTAN [Concomitant]
     Route: 048
  7. NU-LOTAN [Concomitant]
     Route: 048
  8. CRESTOR [Concomitant]
     Route: 048
  9. CRESTOR [Concomitant]
     Route: 048
  10. COMTAN [Concomitant]
     Route: 048
  11. COMTAN [Concomitant]
     Route: 048
  12. MENESIT [Concomitant]
     Route: 048
     Dates: end: 20130321
  13. MENESIT [Concomitant]
     Route: 048
  14. GASMOTIN [Concomitant]
     Route: 048
  15. GASMOTIN [Concomitant]
     Route: 048
  16. FP-OD [Concomitant]
     Route: 048
  17. FP-OD [Concomitant]
     Route: 048
  18. MENESIT [Suspect]
     Route: 048
     Dates: end: 20130321
  19. MENESIT [Suspect]
     Route: 048
     Dates: start: 20130322

REACTIONS (2)
  - Parkinson^s disease [Not Recovered/Not Resolved]
  - Dysgeusia [Recovering/Resolving]
